FAERS Safety Report 18180304 (Version 1)
Quarter: 2020Q3

REPORT INFORMATION
  Report Type: Report from Study
  Country: US (occurrence: US)
  Receive Date: 20200821
  Receipt Date: 20200821
  Transmission Date: 20201103
  Serious: Yes (Other)
  Sender: FDA-Public Use
  Company Number: US-TEVA-2020-US-1817319

PATIENT
  Age: 61 Year
  Sex: Female
  Weight: 69 kg

DRUGS (11)
  1. ALPRAZOLAM 0.5 MG [Concomitant]
     Active Substance: ALPRAZOLAM
  2. MIRTAZAPINE 7.5 MG [Concomitant]
     Active Substance: MIRTAZAPINE
  3. BENZTROPINE 1 MG [Concomitant]
     Active Substance: BENZTROPINE
  4. PRAZOSIN 2 MG [Concomitant]
  5. GABAPENTIN 300 MG [Concomitant]
     Active Substance: GABAPENTIN
  6. AUSTEDO [Suspect]
     Active Substance: DEUTETRABENAZINE
     Indication: TARDIVE DYSKINESIA
     Dosage: 24 MILLIGRAM DAILY;
     Route: 048
  7. FLUOXETINE 40MG [Concomitant]
     Active Substance: FLUOXETINE HYDROCHLORIDE
  8. BACLOFEN 10 MG [Concomitant]
     Active Substance: BACLOFEN
  9. LISINOPRIL 5 MG [Concomitant]
     Active Substance: LISINOPRIL
  10. SEROQUEL [Concomitant]
     Active Substance: QUETIAPINE FUMARATE
  11. SEROQUEL [Concomitant]
     Active Substance: QUETIAPINE FUMARATE

REACTIONS (1)
  - Dyskinesia [Recovered/Resolved]

NARRATIVE: CASE EVENT DATE: 20200417
